FAERS Safety Report 9888729 (Version 2)
Quarter: 2014Q1

REPORT INFORMATION
  Report Type: Report from Study
  Country: US (occurrence: US)
  Receive Date: 20140211
  Receipt Date: 20140211
  Transmission Date: 20141002
  Serious: Yes (Hospitalization)
  Sender: FDA-Public Use
  Company Number: US-BAYER-2014-016656

PATIENT
  Age: 61 Year
  Sex: Female

DRUGS (1)
  1. ADEMPAS [Suspect]
     Indication: COR PULMONALE CHRONIC
     Dosage: 1 MG, TID
     Route: 048
     Dates: start: 20140117, end: 20140124

REACTIONS (3)
  - Oedema [None]
  - Local swelling [None]
  - Pain in extremity [None]
